FAERS Safety Report 10494001 (Version 1)
Quarter: 2014Q4

REPORT INFORMATION
  Report Type: Report from Study
  Country: US (occurrence: US)
  Receive Date: 20141003
  Receipt Date: 20141003
  Transmission Date: 20150528
  Serious: Yes (Hospitalization)
  Sender: FDA-Public Use
  Company Number: US-BIOGENIDEC-2014BI098969

PATIENT
  Age: 36 Year
  Sex: Female

DRUGS (2)
  1. TECFIDERA [Suspect]
     Active Substance: DIMETHYL FUMARATE
     Indication: MULTIPLE SCLEROSIS
     Route: 048
     Dates: start: 201407, end: 201408
  2. TECFIDERA [Suspect]
     Active Substance: DIMETHYL FUMARATE
     Indication: MULTIPLE SCLEROSIS
     Route: 048
     Dates: start: 201408

REACTIONS (8)
  - Depressed mood [Unknown]
  - Nausea [Unknown]
  - Limb discomfort [Unknown]
  - Syncope [Unknown]
  - Flushing [Unknown]
  - Diarrhoea [Unknown]
  - Hypoaesthesia [Unknown]
  - Memory impairment [Unknown]

NARRATIVE: CASE EVENT DATE: 201407
